FAERS Safety Report 5916624-6 (Version None)
Quarter: 2008Q4

REPORT INFORMATION
  Report Type: 
  Country: None (occurrence: None)
  Receive Date: 20081013
  Receipt Date: 20081003
  Transmission Date: 20090506
  Serious: Yes (Hospitalization)
  Sender: FDA-Public Use
  Company Number: US-NOVOPROD-280072

PATIENT
  Sex: Male

DRUGS (6)
  1. NOVOLOG MIX 70/30 [Suspect]
     Indication: TYPE 2 DIABETES MELLITUS
     Dosage: 100 IU, TID
     Route: 058
  2. NOVOLOG [Suspect]
     Indication: TYPE 2 DIABETES MELLITUS
     Dosage: 10 IU, BID
     Route: 058
  3. LORAZEPAM [Concomitant]
     Indication: DRUG USE FOR UNKNOWN INDICATION
     Dosage: UNK, PRN
  4. METOPROLOL TARTRATE [Concomitant]
     Indication: DRUG USE FOR UNKNOWN INDICATION
     Dosage: 50 MG, QD
  5. DIGOXIN [Concomitant]
     Indication: DRUG USE FOR UNKNOWN INDICATION
  6. PROZAC [Concomitant]
     Indication: DRUG USE FOR UNKNOWN INDICATION
     Dosage: 60 MG, QD

REACTIONS (2)
  - CHEST PAIN [None]
  - HEADACHE [None]
